FAERS Safety Report 13930120 (Version 1)
Quarter: 2017Q3

REPORT INFORMATION
  Report Type: Report from Study
  Country: TR (occurrence: TR)
  Receive Date: 20170901
  Receipt Date: 20170901
  Transmission Date: 20171127
  Serious: Yes (Hospitalization)
  Sender: FDA-Public Use
  Company Number: TR-CELGENEUS-TUR-20170401885

PATIENT
  Age: 55 Year

DRUGS (6)
  1. REVLIMID [Suspect]
     Active Substance: LENALIDOMIDE
     Indication: PLASMA CELL MYELOMA
     Dosage: 15 MILLIGRAM
     Route: 048
     Dates: start: 20170202, end: 20170310
  2. DERMATOP [Suspect]
     Active Substance: PREDNICARBATE
     Indication: PERIVASCULAR DERMATITIS
     Dosage: 60 MILLIGRAM
     Route: 061
     Dates: start: 20170310, end: 20170320
  3. DEXAMETHASONE. [Suspect]
     Active Substance: DEXAMETHASONE
     Indication: PLASMA CELL MYELOMA
     Dosage: 5.3333 MILLIGRAM
     Route: 048
     Dates: start: 20170202, end: 20170310
  4. EXCIPIAL LIPO [Suspect]
     Active Substance: COSMETICS
     Indication: PERIVASCULAR DERMATITIS
     Route: 061
     Dates: start: 20170310, end: 20170320
  5. FUNGOSTATIN [Suspect]
     Active Substance: NYSTATIN
     Indication: PERIVASCULAR DERMATITIS
     Route: 061
     Dates: start: 20170310, end: 20170320
  6. PREDNOL [Suspect]
     Active Substance: METHYLPREDNISOLONE
     Indication: PERIVASCULAR DERMATITIS
     Dosage: 60 MILLIGRAM
     Route: 041
     Dates: start: 20170310, end: 20170316

REACTIONS (2)
  - Toxic epidermal necrolysis [Recovered/Resolved]
  - Perivascular dermatitis [Recovered/Resolved]

NARRATIVE: CASE EVENT DATE: 20170310
